FAERS Safety Report 5456751-3 (Version None)
Quarter: 2007Q3

REPORT INFORMATION
  Report Type: 
  Country: None (occurrence: None)
  Receive Date: 20070918
  Receipt Date: 20070912
  Transmission Date: 20080115
  Serious: Yes (Death)
  Sender: FDA-Public Use
  Company Number: JP-ASTRAZENECA-2007AP02489

PATIENT
  Age: 82 Year
  Sex: Male
  Weight: 40 kg

DRUGS (13)
  1. MEROPEN [Suspect]
     Indication: PNEUMONIA
     Route: 041
     Dates: start: 20061128, end: 20061214
  2. MEROPEN [Suspect]
     Route: 041
     Dates: start: 20070104, end: 20070115
  3. AKINETON [Concomitant]
     Route: 048
     Dates: start: 20061128, end: 20061204
  4. ISONIAZID [Concomitant]
     Indication: INFECTION
     Route: 065
     Dates: start: 20061128, end: 20061217
  5. ETHANBUTOL HYDROCHLORIDE [Concomitant]
     Indication: INFECTION
     Route: 048
     Dates: start: 20061128, end: 20061217
  6. RIFAMPICIN [Concomitant]
     Indication: INFECTION
     Route: 048
     Dates: start: 20061128, end: 20061217
  7. AMINOFLUID [Concomitant]
     Indication: DEHYDRATION
     Route: 041
     Dates: start: 20061128, end: 20070115
  8. FAMOTIDINE [Concomitant]
     Indication: GASTRITIS
     Route: 041
     Dates: start: 20061128, end: 20070115
  9. SERENACE [Concomitant]
     Indication: DELIRIUM
     Route: 048
     Dates: start: 20061128, end: 20070115
  10. BIPERIDEN HYDROCHLORIDE TAB [Concomitant]
     Indication: EXTRAPYRAMIDAL DISORDER
     Route: 048
     Dates: start: 20061128, end: 20070115
  11. RISPERDAL [Concomitant]
     Indication: DELIRIUM
     Route: 048
     Dates: start: 20061128, end: 20070115
  12. VITAMEDIN [Concomitant]
     Indication: DEHYDRATION
     Route: 041
     Dates: start: 20061128, end: 20070115
  13. BIOFERMIN R [Concomitant]
     Indication: DIARRHOEA
     Route: 048
     Dates: start: 20061119, end: 20070115

REACTIONS (1)
  - HEPATITIS FULMINANT [None]
